FAERS Safety Report 11155536 (Version 1)
Quarter: 2015Q2

REPORT INFORMATION
  Report Type: Spontaneous
  Country: IL (occurrence: IL)
  Receive Date: 20150602
  Receipt Date: 20150602
  Transmission Date: 20150821
  Serious: Yes (Death, Hospitalization)
  Sender: FDA-Public Use
  Company Number: IL-PFIZER INC-2014207802

PATIENT
  Age: 53 Year
  Sex: Female

DRUGS (5)
  1. PRAMIN [Concomitant]
  2. CLEXANE [Concomitant]
     Active Substance: ENOXAPARIN SODIUM
  3. CODEIN [Concomitant]
     Active Substance: CODEINE
  4. SUTENT [Suspect]
     Active Substance: SUNITINIB MALATE
     Indication: RENAL CELL CARCINOMA
     Dosage: 50 MG, 1X/DAY, CYCLIC, CYCLE 1
     Route: 048
     Dates: start: 20140703
  5. GLYCERIN. [Concomitant]
     Active Substance: GLYCERIN

REACTIONS (10)
  - Urinary tract infection [Recovered/Resolved]
  - Vomiting [Unknown]
  - Asthenia [Not Recovered/Not Resolved]
  - Abdominal discomfort [Not Recovered/Not Resolved]
  - Decreased appetite [Not Recovered/Not Resolved]
  - Abdominal pain upper [Unknown]
  - Nausea [Not Recovered/Not Resolved]
  - Death [Fatal]
  - Pyrexia [Recovered/Resolved]
  - Oral pain [Recovered/Resolved]

NARRATIVE: CASE EVENT DATE: 20140805
